FAERS Safety Report 4588358-4 (Version None)
Quarter: 2005Q1

REPORT INFORMATION
  Report Type: 
  Country: None (occurrence: None)
  Receive Date: 20050222
  Receipt Date: 20050210
  Transmission Date: 20050727
  Serious: Yes (Hospitalization)
  Sender: FDA-Public Use
  Company Number: FR-JNJFOC-20050203109

PATIENT
  Age: 37 Year
  Sex: Female

DRUGS (6)
  1. RISPERDAL [Suspect]
     Indication: DRUG USE FOR UNKNOWN INDICATION
     Route: 049
  2. HALDOL [Suspect]
     Indication: DRUG USE FOR UNKNOWN INDICATION
     Dosage: 2 MG/ML
     Route: 049
  3. AKINETON [Suspect]
     Indication: DRUG USE FOR UNKNOWN INDICATION
     Route: 049
  4. STAGID [Suspect]
     Indication: DRUG USE FOR UNKNOWN INDICATION
     Route: 049
  5. ATARAX [Suspect]
     Indication: DRUG USE FOR UNKNOWN INDICATION
     Route: 049
  6. LEVOTHYROX [Concomitant]

REACTIONS (6)
  - BONE MARROW DEPRESSION [None]
  - DYSPNOEA EXERTIONAL [None]
  - EPISTAXIS [None]
  - EPSTEIN-BARR VIRUS ANTIBODY POSITIVE [None]
  - METRORRHAGIA [None]
  - PETECHIAE [None]
